FAERS Safety Report 18081174 (Version 11)
Quarter: 2025Q1

REPORT INFORMATION
  Report Type: Other
  Country: CA (occurrence: CA)
  Receive Date: 20200728
  Receipt Date: 20250317
  Transmission Date: 20250408
  Serious: Yes (Other)
  Sender: APOTEX
  Company Number: CA-APOTEX-2020AP012184

PATIENT
  Age: 56 Year
  Sex: Female

DRUGS (34)
  1. PROPRANOLOL [Interacting]
     Active Substance: PROPRANOLOL HYDROCHLORIDE
     Indication: Toxicity to various agents
     Route: 065
  2. PROPRANOLOL [Interacting]
     Active Substance: PROPRANOLOL HYDROCHLORIDE
     Indication: Nephropathy toxic
     Dosage: 120 MILLIGRAM, QD
     Route: 065
  3. PROPRANOLOL [Interacting]
     Active Substance: PROPRANOLOL HYDROCHLORIDE
     Indication: Migraine
  4. PROPRANOLOL [Interacting]
     Active Substance: PROPRANOLOL HYDROCHLORIDE
     Indication: Hypertension
  5. OXYCODONE [Interacting]
     Active Substance: OXYCODONE
     Indication: Migraine
     Route: 065
  6. DULOXETINE [Interacting]
     Active Substance: DULOXETINE
     Indication: Migraine
     Route: 065
  7. AMITRIPTYLINE [Interacting]
     Active Substance: AMITRIPTYLINE
     Indication: Migraine
     Route: 065
  8. CANDESARTAN [Interacting]
     Active Substance: CANDESARTAN
     Indication: Migraine
     Route: 048
  9. CANDESARTAN [Interacting]
     Active Substance: CANDESARTAN
     Route: 065
  10. GABAPENTIN [Interacting]
     Active Substance: GABAPENTIN
     Indication: Migraine
     Route: 065
  11. MIRTAZAPINE [Interacting]
     Active Substance: MIRTAZAPINE
     Indication: Migraine
     Route: 065
  12. MIRTAZAPINE [Interacting]
     Active Substance: MIRTAZAPINE
     Route: 048
  13. ONDANSETRON [Interacting]
     Active Substance: ONDANSETRON
     Indication: Migraine
     Route: 065
  14. PERINDOPRIL [Interacting]
     Active Substance: PERINDOPRIL
     Indication: Toxicity to various agents
     Route: 065
  15. PERINDOPRIL [Interacting]
     Active Substance: PERINDOPRIL
     Indication: Nephropathy toxic
  16. PERINDOPRIL [Interacting]
     Active Substance: PERINDOPRIL
     Indication: Hypertension
  17. PERINDOPRIL [Interacting]
     Active Substance: PERINDOPRIL
     Indication: Migraine
  18. PERINDOPRIL [Interacting]
     Active Substance: PERINDOPRIL
     Indication: Nephropathy
  19. TOPIRAMATE [Interacting]
     Active Substance: TOPIRAMATE
     Indication: Migraine
     Route: 065
  20. TOPIRAMATE [Interacting]
     Active Substance: TOPIRAMATE
     Route: 048
  21. INDOMETHACIN [Suspect]
     Active Substance: INDOMETHACIN
     Indication: Migraine
     Route: 065
  22. AIMOVIG [Suspect]
     Active Substance: ERENUMAB-AOOE
     Indication: Migraine
     Route: 058
  23. CYMBALTA [Suspect]
     Active Substance: DULOXETINE HYDROCHLORIDE
     Indication: Migraine
     Route: 065
  24. PROPRANOLOL HYDROCHLORIDE [Interacting]
     Active Substance: PROPRANOLOL HYDROCHLORIDE
     Indication: Toxicity to various agents
     Route: 065
  25. PROPRANOLOL HYDROCHLORIDE [Interacting]
     Active Substance: PROPRANOLOL HYDROCHLORIDE
     Indication: Nephropathy toxic
     Dosage: 120 MILLIGRAM, QD
     Route: 065
  26. PROPRANOLOL HYDROCHLORIDE [Interacting]
     Active Substance: PROPRANOLOL HYDROCHLORIDE
     Indication: Hypertension
  27. PROPRANOLOL HYDROCHLORIDE [Interacting]
     Active Substance: PROPRANOLOL HYDROCHLORIDE
     Indication: Migraine
  28. PROPRANOLOL [Interacting]
     Active Substance: PROPRANOLOL HYDROCHLORIDE
     Indication: Toxicity to various agents
     Dosage: 120 MILLIGRAM, QD
     Route: 065
  29. PROPRANOLOL [Interacting]
     Active Substance: PROPRANOLOL HYDROCHLORIDE
     Indication: Nephropathy toxic
     Route: 065
  30. PROPRANOLOL [Interacting]
     Active Substance: PROPRANOLOL HYDROCHLORIDE
     Indication: Hypertension
  31. PROPRANOLOL [Interacting]
     Active Substance: PROPRANOLOL HYDROCHLORIDE
     Indication: Migraine
  32. DOMPERIDONE MALEATE [Concomitant]
     Active Substance: DOMPERIDONE MALEATE
     Indication: Migraine
     Route: 048
  33. DIVALPROEX SODIUM [Concomitant]
     Active Substance: DIVALPROEX SODIUM
     Indication: Migraine
     Route: 065
  34. BOTULINUM TOXIN TYPE A [Concomitant]
     Active Substance: BOTULINUM TOXIN TYPE A
     Indication: Migraine
     Route: 065

REACTIONS (14)
  - Drug intolerance [Unknown]
  - Contraindicated product administered [Unknown]
  - Drug interaction [Unknown]
  - Toxicity to various agents [Unknown]
  - Nephropathy toxic [Unknown]
  - Mental disorder [Unknown]
  - Depressed level of consciousness [Unknown]
  - Electrocardiogram QT prolonged [Unknown]
  - Hypertension [Unknown]
  - Fall [Unknown]
  - Serotonin syndrome [Unknown]
  - Off label use [Unknown]
  - Drug ineffective for unapproved indication [Unknown]
  - Drug ineffective [Unknown]
